FAERS Safety Report 24202198 (Version 1)
Quarter: 2024Q3

REPORT INFORMATION
  Report Type: Spontaneous
  Country: US (occurrence: US)
  Receive Date: 20240812
  Receipt Date: 20240812
  Transmission Date: 20241016
  Serious: No
  Sender: BRISTOL MYERS SQUIBB
  Company Number: US-BRISTOL-MYERS SQUIBB COMPANY-2024-125134

PATIENT
  Age: 38 Year
  Sex: Female
  Weight: 94.35 kg

DRUGS (2)
  1. REVLIMID [Suspect]
     Active Substance: LENALIDOMIDE
     Indication: Plasma cell myeloma
     Dosage: DOSE : 15 MG;     FREQ : TAKE ONE CAPSULE DAILY AT BEDTIME FOR 21 DAYS ON AND 7 DAYS OFF
     Route: 048
     Dates: start: 20240320
  2. VELCADE [Suspect]
     Active Substance: BORTEZOMIB
     Indication: Product used for unknown indication

REACTIONS (1)
  - Paraesthesia [Unknown]

NARRATIVE: CASE EVENT DATE: 20240719
